FAERS Safety Report 26043154 (Version 2)
Quarter: 2025Q4

REPORT INFORMATION
  Report Type: Other
  Country: US (occurrence: US)
  Receive Date: 20251113
  Receipt Date: 20251229
  Transmission Date: 20260117
  Serious: Yes (Hospitalization)
  Sender: TRAVERE THERAPEUTICS
  Company Number: US-TRAVERE-2025TVT02158

PATIENT
  Age: 68 Year
  Sex: Female

DRUGS (12)
  1. FILSPARI [Suspect]
     Active Substance: SPARSENTAN
     Indication: Essential hypertension
     Route: 048
     Dates: start: 20240723
  2. FILSPARI [Suspect]
     Active Substance: SPARSENTAN
     Indication: Renal transplant
  3. ATORVASTATIN [Concomitant]
     Active Substance: ATORVASTATIN
  4. GABAPENTIN [Concomitant]
     Active Substance: GABAPENTIN
  5. MAGNESIUM [Concomitant]
     Active Substance: MAGNESIUM
  6. PREDNISONE [Concomitant]
     Active Substance: PREDNISONE
  7. CLONIDINE [Concomitant]
     Active Substance: CLONIDINE
  8. HUMALOG [Concomitant]
     Active Substance: INSULIN LISPRO
  9. PREMARIN [Concomitant]
     Active Substance: ESTROGENS, CONJUGATED
  10. FISH OIL [Concomitant]
     Active Substance: FISH OIL
  11. METOPROLOL [Concomitant]
     Active Substance: METOPROLOL
  12. PANTOPRAZOLE [Concomitant]
     Active Substance: PANTOPRAZOLE

REACTIONS (2)
  - Cardiac disorder [Unknown]
  - Product used for unknown indication [Unknown]

NARRATIVE: CASE EVENT DATE: 20240723
